FAERS Safety Report 14196933 (Version 3)
Quarter: 2018Q1

REPORT INFORMATION
  Report Type: Report from Study
  Country: LB (occurrence: LB)
  Receive Date: 20171116
  Receipt Date: 20180111
  Transmission Date: 20180508
  Serious: Yes (Death, Hospitalization, Other)
  Sender: FDA-Public Use
  Company Number: PHHY2017LB169055

PATIENT
  Age: 53 Year
  Sex: Male

DRUGS (1)
  1. ENTRESTO [Suspect]
     Active Substance: SACUBITRIL\VALSARTAN
     Indication: PRODUCT USED FOR UNKNOWN INDICATION
     Dosage: 200 MG (SACUBITRIL 97 MG/ VALSARTAN 103 MG), BID
     Route: 048
     Dates: start: 20170714

REACTIONS (4)
  - Thrombotic stroke [Fatal]
  - Coma [Fatal]
  - Myocardial infarction [Unknown]
  - Cardiac arrest [Fatal]

NARRATIVE: CASE EVENT DATE: 20171025
